FAERS Safety Report 5915571-3 (Version None)
Quarter: 2008Q4

REPORT INFORMATION
  Report Type: 
  Country: None (occurrence: None)
  Receive Date: 20081010
  Receipt Date: 20080821
  Transmission Date: 20090506
  Serious: No
  Sender: FDA-Public Use
  Company Number: A0743716A

PATIENT
  Age: 54 Year
  Sex: Female

DRUGS (3)
  1. TYKERB [Suspect]
     Indication: BREAST CANCER
     Dosage: 5TAB PER DAY
     Route: 048
     Dates: start: 20080815
  2. XELODA [Suspect]
     Indication: BREAST CANCER
     Route: 048
  3. METFORMIN HCL [Concomitant]

REACTIONS (1)
  - DIARRHOEA [None]
